FAERS Safety Report 10562269 (Version 2)
Quarter: 2015Q1

REPORT INFORMATION
  Report Type: Spontaneous
  Country: FR (occurrence: FR)
  Receive Date: 20141104
  Receipt Date: 20150206
  Transmission Date: 20150720
  Serious: Yes (Other)
  Sender: FDA-Public Use
  Company Number: FR-009507513-1411FRA000015

PATIENT
  Sex: Male

DRUGS (1)
  1. NORSET [Suspect]
     Active Substance: MIRTAZAPINE
     Dosage: UNK
     Route: 064

REACTIONS (3)
  - Insomnia [Unknown]
  - Psychomotor skills impaired [Recovering/Resolving]
  - Foetal exposure during pregnancy [Recovered/Resolved]
